FAERS Safety Report 6715084-5 (Version None)
Quarter: 2010Q2

REPORT INFORMATION
  Report Type: 
  Country: None (occurrence: None)
  Receive Date: 20100506
  Receipt Date: 20100506
  Transmission Date: 20101027
  Serious: No
  Sender: FDA-Public Use
  Company Number: None

PATIENT
  Sex: Female

DRUGS (1)
  1. LAMOTRIGINE [Suspect]
     Indication: BIPOLAR DISORDER
     Dosage: 1/2 OF 25 DAILY ORAL (SINCE AROUND LATE 09)
     Route: 048

REACTIONS (3)
  - BLISTER [None]
  - PAIN [None]
  - PRODUCT SUBSTITUTION ISSUE [None]
